FAERS Safety Report 11611162 (Version 2)
Quarter: 2015Q4

REPORT INFORMATION
  Report Type: Spontaneous
  Country: CN (occurrence: CN)
  Receive Date: 20151008
  Receipt Date: 20151015
  Transmission Date: 20160304
  Serious: Yes (Hospitalization, Other)
  Sender: FDA-Public Use
  Company Number: CN-ACTAVIS-2015-20012

PATIENT
  Sex: Female

DRUGS (9)
  1. AMIODARONE [Concomitant]
     Active Substance: AMIODARONE
     Indication: ATRIAL FIBRILLATION
     Dosage: 0.2 G, DAILY
     Route: 065
  2. WARFARIN (UNKNOWN) [Interacting]
     Active Substance: WARFARIN
     Indication: PRODUCT USED FOR UNKNOWN INDICATION
     Dosage: 1.5 MG, DAILY
     Route: 065
  3. COENZYME Q10 [Interacting]
     Active Substance: UBIDECARENONE
     Indication: PRODUCT USED FOR UNKNOWN INDICATION
     Dosage: UNK
     Route: 065
  4. NOVOLIN 30R                        /00030501/ [Concomitant]
     Active Substance: INSULIN HUMAN
     Indication: TYPE 2 DIABETES MELLITUS
     Dosage: 6 IU, QAM/QPM
     Route: 065
  5. WARFARIN (UNKNOWN) [Interacting]
     Active Substance: WARFARIN
     Dosage: 2.23 MG/2 DAYS
     Route: 065
  6. TRAMADOL (UNKNOWN) [Interacting]
     Active Substance: TRAMADOL
     Indication: OSTEOARTHRITIS
  7. METOPROLOL [Concomitant]
     Active Substance: METOPROLOL
     Indication: HYPERTENSION
     Dosage: 71.25 MG, DAILY
     Route: 065
  8. FOSINOPRIL [Concomitant]
     Active Substance: FOSINOPRIL
     Indication: HYPERTENSION
     Dosage: 10 MG, DAILY
     Route: 065
  9. TRAMADOL (UNKNOWN) [Suspect]
     Active Substance: TRAMADOL
     Indication: MUSCULOSKELETAL PAIN
     Dosage: 200 MG, BID
     Route: 065

REACTIONS (4)
  - International normalised ratio increased [Recovered/Resolved]
  - Haematuria [Recovered/Resolved]
  - Ecchymosis [Recovered/Resolved]
  - Drug interaction [Recovered/Resolved]
